FAERS Safety Report 5676381-8 (Version None)
Quarter: 2008Q1

REPORT INFORMATION
  Report Type: 
  Country: None (occurrence: None)
  Receive Date: 20080321
  Receipt Date: 20080311
  Transmission Date: 20080703
  Serious: Yes (Other)
  Sender: FDA-Public Use
  Company Number: US-PFIZER INC-2008023464

PATIENT
  Age: 51 Year
  Sex: Female
  Weight: 40.4 kg

DRUGS (3)
  1. CHANTIX [Suspect]
     Indication: SMOKING CESSATION THERAPY
  2. ALPRAZOLAM [Suspect]
     Indication: ANXIETY
     Dosage: TEXT:PRN
  3. REMICADE [Concomitant]
     Indication: RHEUMATOID ARTHRITIS
     Route: 042

REACTIONS (6)
  - BACK PAIN [None]
  - CARDIAC DISORDER [None]
  - EMPHYSEMA [None]
  - FEELING JITTERY [None]
  - HUNGER [None]
  - THIRST [None]
